FAERS Safety Report 6609618-9 (Version None)
Quarter: 2010Q1

REPORT INFORMATION
  Report Type: 
  Country: None (occurrence: None)
  Receive Date: 20100302
  Receipt Date: 20100217
  Transmission Date: 20100710
  Serious: Yes (Other)
  Sender: FDA-Public Use
  Company Number: JP-PFIZER INC-2010021949

PATIENT
  Age: 21 Year
  Sex: Female

DRUGS (1)
  1. SOLU-MEDROL [Suspect]
     Indication: GRAFT VERSUS HOST DISEASE
     Route: 042

REACTIONS (2)
  - HEPATIC VEIN OCCLUSION [None]
  - THROMBOTIC MICROANGIOPATHY [None]
